FAERS Safety Report 11919812 (Version 4)
Quarter: 2016Q1

REPORT INFORMATION
  Report Type: Spontaneous
  Country: HR (occurrence: HR)
  Receive Date: 20160115
  Receipt Date: 20160318
  Transmission Date: 20160526
  Serious: Yes (Hospitalization, Other)
  Sender: FDA-Public Use
  Company Number: PHHY2016HR002837

PATIENT
  Age: 19 Year
  Sex: Male

DRUGS (6)
  1. CELLCEPT [Suspect]
     Active Substance: MYCOPHENOLATE MOFETIL\MYCOPHENOLATE MOFETIL HYDROCHLORIDE
     Indication: IMMUNOSUPPRESSION
     Dosage: 2.5 MG, QD
     Route: 065
  2. DECORTIN [Suspect]
     Active Substance: PREDNISONE
     Indication: IMMUNOSUPPRESSION
     Dosage: 3000 MG, QD
     Route: 065
  3. SANDIMMUN / NEORAL/ OL 27-400/ OLO 400 [Suspect]
     Active Substance: CYCLOSPORINE
     Dosage: REDUCED BY 50%
     Route: 065
  4. SANDIMMUN / NEORAL/ OL 27-400/ OLO 400 [Suspect]
     Active Substance: CYCLOSPORINE
     Indication: IMMUNOSUPPRESSION
     Dosage: 220 MG, QD
     Route: 065
  5. CELLCEPT [Suspect]
     Active Substance: MYCOPHENOLATE MOFETIL\MYCOPHENOLATE MOFETIL HYDROCHLORIDE
     Dosage: 10 MG, QD
     Route: 065
  6. DECORTIN [Suspect]
     Active Substance: PREDNISONE
     Dosage: REDUCED BY 66%
     Route: 065

REACTIONS (1)
  - Post transplant lymphoproliferative disorder [Recovered/Resolved with Sequelae]

NARRATIVE: CASE EVENT DATE: 201012
